FAERS Safety Report 6567977-X (Version None)
Quarter: 2010Q1

REPORT INFORMATION
  Report Type: 
  Country: None (occurrence: None)
  Receive Date: 20100203
  Receipt Date: 20100119
  Transmission Date: 20100710
  Serious: Yes (Hospitalization, Other)
  Sender: FDA-Public Use
  Company Number: PHHY2010DE02998

PATIENT
  Age: 86 Year
  Sex: Male

DRUGS (4)
  1. EXELON [Suspect]
     Indication: DEMENTIA ALZHEIMER'S TYPE
     Dosage: 4.6 MG, QD
     Route: 062
     Dates: end: 20080206
  2. SEROQUEL [Suspect]
     Dosage: 50 MG, QD
     Dates: start: 20080131, end: 20080305
  3. RAMIPRIL [Suspect]
     Dosage: 2.5/12.5MG
     Dates: start: 20080121, end: 20080305
  4. ZOPICLON [Suspect]
     Dosage: 7.5 MG, QD
     Dates: start: 20080121, end: 20080305

REACTIONS (3)
  - CONFUSIONAL STATE [None]
  - MEMORY IMPAIRMENT [None]
  - RESTLESSNESS [None]
